FAERS Safety Report 23083405 (Version 1)
Quarter: 2023Q4

REPORT INFORMATION
  Report Type: Spontaneous
  Country: US (occurrence: None)
  Receive Date: 20231017
  Receipt Date: 20231017
  Transmission Date: 20240110
  Serious: Yes (Hospitalization)
  Sender: FDA-Public Use
  Company Number: None

PATIENT
  Age: 74 Year
  Sex: Male

DRUGS (3)
  1. WARFARIN SODIUM [Suspect]
     Active Substance: WARFARIN SODIUM
     Dates: start: 19950101, end: 20230128
  2. ASPIRIN 81MG [Suspect]
     Active Substance: ASPIRIN
     Dosage: FREQUENCY : DAILY;?
     Route: 048
     Dates: start: 20170202, end: 20230128
  3. VENLAFAXINE [Suspect]
     Active Substance: VENLAFAXINE HYDROCHLORIDE

REACTIONS (9)
  - Cerebral haemorrhage [None]
  - Unresponsive to stimuli [None]
  - Blood pressure increased [None]
  - Respiratory failure [None]
  - Cerebral haematoma [None]
  - Hydrocephalus [None]
  - Cerebral mass effect [None]
  - Brain herniation [None]
  - International normalised ratio increased [None]

NARRATIVE: CASE EVENT DATE: 20230128
